FAERS Safety Report 9173408 (Version 1)
Quarter: 2013Q1

REPORT INFORMATION
  Report Type: Spontaneous
  Country: US (occurrence: None)
  Receive Date: 20130318
  Receipt Date: 20130318
  Transmission Date: 20140127
  Serious: Yes (Hospitalization, Disabling)
  Sender: FDA-Public Use
  Company Number: None

PATIENT
  Age: 53 Year
  Sex: Male
  Weight: 64 kg

DRUGS (1)
  1. ADCETRIS (BRENTUXIMAB VEDOTIN) INJECTION [Suspect]
     Route: 040
     Dates: start: 20121214, end: 20130128

REACTIONS (4)
  - Peripheral motor neuropathy [None]
  - Guillain-Barre syndrome [None]
  - Respiratory disorder [None]
  - Asthenia [None]
